FAERS Safety Report 13667566 (Version 1)
Quarter: 2017Q2

REPORT INFORMATION
  Report Type: Spontaneous
  Country: US (occurrence: US)
  Receive Date: 20170620
  Receipt Date: 20170620
  Transmission Date: 20170830
  Serious: No
  Sender: FDA-Public Use
  Company Number: US-TEVA-751904ACC

PATIENT
  Age: 72 Year
  Sex: Male

DRUGS (1)
  1. PROPRANOLOL HYDROCHLORIDE. [Suspect]
     Active Substance: PROPRANOLOL HYDROCHLORIDE
     Dates: start: 20170311

REACTIONS (5)
  - Adverse event [Not Recovered/Not Resolved]
  - Product physical issue [Unknown]
  - Panic attack [Not Recovered/Not Resolved]
  - Heart rate increased [Not Recovered/Not Resolved]
  - Intentional product use issue [Unknown]
